FAERS Safety Report 10055732 (Version 1)
Quarter: 2014Q2

REPORT INFORMATION
  Report Type: Spontaneous
  Country: GB (occurrence: GB)
  Receive Date: 20140403
  Receipt Date: 20140403
  Transmission Date: 20141212
  Serious: Yes (Other)
  Sender: FDA-Public Use
  Company Number: GB-RANBAXY-2014RR-79511

PATIENT
  Age: 57 Year
  Sex: Male

DRUGS (17)
  1. SIMVASTATIN [Suspect]
     Indication: PRODUCT USED FOR UNKNOWN INDICATION
     Dosage: UNK
     Route: 065
  2. ASPIRIN [Interacting]
     Indication: PRODUCT USED FOR UNKNOWN INDICATION
     Dosage: UNK
     Route: 065
  3. CO-AMOXICLAV [Interacting]
     Indication: CHRONIC OBSTRUCTIVE PULMONARY DISEASE
     Dosage: UNK
     Route: 048
  4. WARFARIN [Interacting]
     Indication: DEEP VEIN THROMBOSIS
     Dosage: 10 MG, UNK
     Route: 065
  5. WARFARIN [Suspect]
     Indication: DEEP VEIN THROMBOSIS
     Dosage: 5 MG, UNK
     Route: 065
  6. FRAGMIN [Interacting]
     Indication: DEEP VEIN THROMBOSIS
     Dosage: 18000 IU, UNK
     Route: 065
  7. QUININE [Concomitant]
     Indication: PRODUCT USED FOR UNKNOWN INDICATION
     Dosage: UNK
     Route: 065
  8. RAMIPRIL [Concomitant]
     Indication: PRODUCT USED FOR UNKNOWN INDICATION
     Dosage: UNK
     Route: 065
  9. CARBOCISTEINE [Concomitant]
     Indication: PRODUCT USED FOR UNKNOWN INDICATION
     Dosage: UNK
     Route: 065
  10. LEVOTHYROXINE [Concomitant]
     Indication: HYPOTHYROIDISM
     Dosage: UNK
     Route: 065
  11. DILTIAZEM [Concomitant]
     Indication: PRODUCT USED FOR UNKNOWN INDICATION
     Dosage: UNK
     Route: 065
  12. BUDESONIDE AND FORMOTEROL [Concomitant]
     Indication: PRODUCT USED FOR UNKNOWN INDICATION
     Dosage: UNK
     Route: 065
  13. TIOTROPIUM [Concomitant]
     Indication: PRODUCT USED FOR UNKNOWN INDICATION
     Dosage: UNK
     Route: 065
  14. SALBUTAMOL [Concomitant]
     Indication: PRODUCT USED FOR UNKNOWN INDICATION
     Dosage: UNK
     Route: 065
  15. PREDNISOLONE [Concomitant]
     Indication: CHRONIC OBSTRUCTIVE PULMONARY DISEASE
     Dosage: UNK
     Route: 065
  16. BENZYLPENICILLIN [Concomitant]
     Indication: CELLULITIS
     Dosage: UNK
     Route: 065
  17. FLUCLOXACILLIN [Concomitant]
     Indication: CELLULITIS
     Dosage: UNK
     Route: 065

REACTIONS (3)
  - Compartment syndrome [Recovering/Resolving]
  - Coagulation time prolonged [Unknown]
  - Drug interaction [Unknown]
